FAERS Safety Report 17609366 (Version 1)
Quarter: 2020Q2

REPORT INFORMATION
  Report Type: Spontaneous
  Country: US (occurrence: US)
  Receive Date: 20200401
  Receipt Date: 20200401
  Transmission Date: 20200713
  Serious: Yes (Death, Life-Threatening, Hospitalization)
  Sender: FDA-Public Use
  Company Number: US-TEVA-2020-US-1215230

PATIENT
  Age: 65 Year
  Sex: Female

DRUGS (15)
  1. RANOLAZINE. [Interacting]
     Active Substance: RANOLAZINE
     Indication: COMPLETED SUICIDE
     Route: 048
  2. GLUCAGON. [Suspect]
     Active Substance: GLUCAGON
     Indication: RESUSCITATION
     Route: 042
  3. TRAZODONE [Interacting]
     Active Substance: TRAZODONE HYDROCHLORIDE
     Route: 065
  4. NOREPINEPHRINE. [Suspect]
     Active Substance: NOREPINEPHRINE
     Indication: HYPOTENSION
     Route: 050
  5. CALCIUM [Concomitant]
     Active Substance: CALCIUM
     Route: 042
  6. EPINEPHRINE. [Suspect]
     Active Substance: EPINEPHRINE
     Indication: RESUSCITATION
     Route: 065
  7. QUETIAPINE. [Interacting]
     Active Substance: QUETIAPINE
     Dosage: FORMULATION: PILLS
     Route: 048
  8. FAT EMULSION NOS [Suspect]
     Active Substance: EGG PHOSPHOLIPIDS\SAFFLOWER OIL\SOYBEAN OIL
     Indication: RESUSCITATION
     Route: 042
  9. GABAPENTIN. [Interacting]
     Active Substance: GABAPENTIN
     Route: 065
  10. PHENYLEPHRINE [Suspect]
     Active Substance: PHENYLEPHRINE HYDROCHLORIDE
     Indication: RESUSCITATION
     Route: 065
  11. VASOPRESSIN. [Suspect]
     Active Substance: VASOPRESSIN
     Indication: RESUSCITATION
     Route: 042
  12. RIVAROXABAN [Interacting]
     Active Substance: RIVAROXABAN
     Route: 065
  13. MIRTAZAPINE. [Interacting]
     Active Substance: MIRTAZAPINE
     Route: 048
  14. VALPROATE [Interacting]
     Active Substance: VALPROIC ACID
     Route: 048
  15. MAGNESIUM [Concomitant]
     Active Substance: MAGNESIUM
     Route: 042

REACTIONS (15)
  - Hypotension [Unknown]
  - Hypoxia [Unknown]
  - Bradycardia [Fatal]
  - Electrocardiogram QT prolonged [Fatal]
  - Drug ineffective [Fatal]
  - Somnolence [Unknown]
  - Hyperhidrosis [Unknown]
  - Cardiac arrest [Fatal]
  - Circulatory collapse [Fatal]
  - Pulseless electrical activity [Fatal]
  - Pulmonary oedema [Unknown]
  - Intentional overdose [Fatal]
  - Suicide attempt [Fatal]
  - Drug interaction [Fatal]
  - Tonic clonic movements [Unknown]
